FAERS Safety Report 11675336 (Version 1)
Quarter: 2015Q4

REPORT INFORMATION
  Report Type: Spontaneous
  Country: US (occurrence: US)
  Receive Date: 20151027
  Receipt Date: 20151027
  Transmission Date: 20160304
  Serious: No
  Sender: FDA-Public Use
  Company Number: US-ELI_LILLY_AND_COMPANY-US201004005673

PATIENT
  Age: 42 Year
  Sex: Female

DRUGS (1)
  1. FORTEO [Suspect]
     Active Substance: TERIPARATIDE
     Indication: OSTEOPOROSIS
     Dosage: 20 UG, DAILY (1/D)
     Route: 065
     Dates: start: 20100325

REACTIONS (10)
  - Malaise [Unknown]
  - Fatigue [Unknown]
  - Muscle spasms [Unknown]
  - Sensory loss [Unknown]
  - Headache [Unknown]
  - Intervertebral disc protrusion [Unknown]
  - Decreased appetite [Unknown]
  - Hordeolum [Unknown]
  - Stress [Unknown]
  - Diarrhoea [Unknown]

NARRATIVE: CASE EVENT DATE: 20100325
